FAERS Safety Report 8154635-3 (Version None)
Quarter: 2012Q1

REPORT INFORMATION
  Report Type: 
  Country: None (occurrence: None)
  Receive Date: 20120221
  Receipt Date: 20120215
  Transmission Date: 20120608
  Serious: Yes (Hospitalization)
  Sender: FDA-Public Use
  Company Number: US-PFIZER INC-2012042058

PATIENT
  Sex: Female
  Weight: 72.6 kg

DRUGS (1)
  1. PREMARIN [Suspect]
     Dosage: UNK, 2X/WEEK
     Route: 067
     Dates: start: 20111106

REACTIONS (3)
  - HYSTERECTOMY [None]
  - UTERINE SPASM [None]
  - GASTROINTESTINAL DISORDER [None]
